FAERS Safety Report 5621221-6 (Version None)
Quarter: 2008Q1

REPORT INFORMATION
  Report Type: 
  Country: None (occurrence: None)
  Receive Date: 20080114
  Receipt Date: 20061228
  Transmission Date: 20080703
  Serious: Yes (Hospitalization)
  Sender: FDA-Public Use
  Company Number: A03200700067

PATIENT
  Age: 60 Year
  Sex: Male
  Weight: 131.52 kg

DRUGS (11)
  1. PLAVIX [Suspect]
     Indication: CEREBROVASCULAR ACCIDENT
     Dosage: 75 MG QD - ORAL
     Route: 048
     Dates: start: 20020101
  2. INSULIN LISPRO [Concomitant]
  3. INSULIN GLARGINE [Concomitant]
  4. RAMIPRIL [Concomitant]
  5. ISOSORBIDE MONONITRATE [Concomitant]
  6. CARVEDILOL [Concomitant]
  7. TRAMADOL HCL [Concomitant]
  8. SIMVASTATIN [Concomitant]
  9. FUROSEMIDE [Concomitant]
  10. ALENDRONATE SODIUM [Concomitant]
  11. AMLODIPINE BESILATE [Concomitant]

REACTIONS (2)
  - BLOOD PRESSURE DECREASED [None]
  - TRANSIENT ISCHAEMIC ATTACK [None]
